FAERS Safety Report 7393454-2 (Version None)
Quarter: 2011Q2

REPORT INFORMATION
  Report Type: 
  Country: None (occurrence: None)
  Receive Date: 20110405
  Receipt Date: 20100914
  Transmission Date: 20111010
  Serious: Yes (Hospitalization)
  Sender: FDA-Public Use
  Company Number: US-BAYER-201018677NA

PATIENT
  Sex: Female

DRUGS (5)
  1. PROAIR HFA [Concomitant]
     Route: 055
  2. YAZ [Suspect]
     Dosage: UNK
     Dates: start: 20060101, end: 20080127
  3. YASMIN [Suspect]
     Route: 048
  4. UNCODEABLE ^UNCLASSIFIABLE^ [Concomitant]
  5. TORADOL [Concomitant]

REACTIONS (8)
  - GALLBLADDER DISORDER [None]
  - BILIARY COLIC [None]
  - VOMITING [None]
  - NAUSEA [None]
  - CHOLECYSTITIS CHRONIC [None]
  - ABDOMINAL PAIN UPPER [None]
  - PAIN [None]
  - CHOLELITHIASIS [None]
